FAERS Safety Report 23331536 (Version 5)
Quarter: 2024Q2

REPORT INFORMATION
  Report Type: Spontaneous
  Country: US (occurrence: US)
  Receive Date: 20231222
  Receipt Date: 20240618
  Transmission Date: 20240716
  Serious: No
  Sender: FDA-Public Use
  Company Number: US-Blueprint Medicines Corporation-SP-US-2023-002104

PATIENT
  Sex: Female

DRUGS (7)
  1. AYVAKIT [Suspect]
     Active Substance: AVAPRITINIB
     Indication: Systemic mastocytosis
     Route: 048
     Dates: start: 20230831
  2. AYVAKIT [Suspect]
     Active Substance: AVAPRITINIB
     Indication: Indolent systemic mastocytosis
     Route: 048
     Dates: start: 20230831
  3. AYVAKIT [Suspect]
     Active Substance: AVAPRITINIB
     Route: 048
     Dates: start: 20230821
  4. AYVAKIT [Suspect]
     Active Substance: AVAPRITINIB
     Route: 065
  5. COLCHICINE [Suspect]
     Active Substance: COLCHICINE
     Indication: Gout
     Route: 065
  6. ALLOPURINOL [Suspect]
     Active Substance: ALLOPURINOL
     Indication: Product used for unknown indication
     Route: 065
  7. ACETAMINOPHEN\DIPHENHYDRAMINE [Concomitant]
     Active Substance: ACETAMINOPHEN\DIPHENHYDRAMINE
     Indication: Product used for unknown indication
     Route: 065

REACTIONS (5)
  - Gout [Unknown]
  - Diarrhoea [Unknown]
  - Abdominal pain upper [Recovering/Resolving]
  - Vomiting [Recovered/Resolved]
  - Hypersensitivity [Recovered/Resolved]
